FAERS Safety Report 7476377-X (Version None)
Quarter: 2011Q2

REPORT INFORMATION
  Report Type: 
  Country: None (occurrence: None)
  Receive Date: 20110512
  Receipt Date: 20110504
  Transmission Date: 20111010
  Serious: Yes (Death)
  Sender: FDA-Public Use
  Company Number: A0927023A

PATIENT
  Age: 80 Year
  Sex: Male

DRUGS (1)
  1. REQUIP XL [Suspect]
     Dosage: 8MG UNKNOWN
     Route: 065
     Dates: start: 20081201, end: 20110425

REACTIONS (1)
  - PARKINSON'S DISEASE [None]
